FAERS Safety Report 25871148 (Version 1)
Quarter: 2025Q4

REPORT INFORMATION
  Report Type: Spontaneous
  Country: AE (occurrence: AE)
  Receive Date: 20251001
  Receipt Date: 20251001
  Transmission Date: 20260118
  Serious: Yes (Other)
  Sender: ELI LILLY AND COMPANY
  Company Number: AE-ELI_LILLY_AND_COMPANY-AE202509026293

PATIENT
  Sex: Male

DRUGS (1)
  1. TALTZ [Suspect]
     Active Substance: IXEKIZUMAB
     Indication: Psoriatic arthropathy
     Dosage: 80 MG, MONTHLY (1/M)
     Route: 065

REACTIONS (1)
  - Myocarditis [Recovered/Resolved]
